FAERS Safety Report 7643035-8 (Version None)
Quarter: 2011Q3

REPORT INFORMATION
  Report Type: 
  Country: None (occurrence: None)
  Receive Date: 20110728
  Receipt Date: 20110719
  Transmission Date: 20111222
  Serious: Yes (Other)
  Sender: FDA-Public Use
  Company Number: US-RB-015460-10

PATIENT
  Age: 22 Year
  Sex: Female

DRUGS (3)
  1. SUBUTEX [Suspect]
     Indication: DRUG DEPENDENCE
     Route: 060
     Dates: start: 20100901, end: 20110401
  2. SUBOXONE [Suspect]
     Indication: DRUG DEPENDENCE
     Route: 060
     Dates: start: 20110401
  3. SUBOXONE [Suspect]
     Route: 060
     Dates: start: 20090201, end: 20100901

REACTIONS (4)
  - MATERNAL EXPOSURE DURING PREGNANCY [None]
  - CONDITION AGGRAVATED [None]
  - ABORTION SPONTANEOUS [None]
  - STRESS [None]
